FAERS Safety Report 6194668-X (Version None)
Quarter: 2009Q2

REPORT INFORMATION
  Report Type: 
  Country: None (occurrence: None)
  Receive Date: 20090519
  Receipt Date: 20090513
  Transmission Date: 20091009
  Serious: Yes (Hospitalization)
  Sender: FDA-Public Use
  Company Number: US-BAYER-200918653NA

PATIENT
  Age: 80 Year
  Sex: Female

DRUGS (3)
  1. NEXAVAR [Suspect]
     Indication: RENAL CELL CARCINOMA
     Dosage: TOTAL DAILY DOSE: 200 MG  UNIT DOSE: 200 MG
     Route: 048
     Dates: start: 20090401, end: 20090401
  2. NEXAVAR [Suspect]
     Dosage: TOTAL DAILY DOSE: 400 MG  UNIT DOSE: 200 MG
     Route: 048
     Dates: start: 20090401
  3. NEXAVAR [Suspect]
     Dosage: TOTAL DAILY DOSE: 200 MG  UNIT DOSE: 200 MG
     Route: 048
     Dates: start: 20090401, end: 20090512

REACTIONS (4)
  - BLISTER [None]
  - OROPHARYNGEAL PAIN [None]
  - PAIN IN EXTREMITY [None]
  - PULMONARY OEDEMA [None]
